FAERS Safety Report 7369211-X (Version None)
Quarter: 2011Q1

REPORT INFORMATION
  Report Type: 
  Country: None (occurrence: None)
  Receive Date: 20110323
  Receipt Date: 20110315
  Transmission Date: 20110831
  Serious: Yes (Hospitalization)
  Sender: FDA-Public Use
  Company Number: AR-ROCHE-765859

PATIENT
  Sex: Male

DRUGS (1)
  1. ACTEMRA [Suspect]
     Dosage: FORM: INFUSION.
     Route: 042
     Dates: end: 20110301

REACTIONS (5)
  - LEUKOPENIA [None]
  - DIARRHOEA [None]
  - TRANSAMINASES INCREASED [None]
  - DEHYDRATION [None]
  - WEIGHT DECREASED [None]
